FAERS Safety Report 13167683 (Version 1)
Quarter: 2017Q1

REPORT INFORMATION
  Report Type: Spontaneous
  Country: FR (occurrence: FR)
  Receive Date: 20170131
  Receipt Date: 20170131
  Transmission Date: 20170428
  Serious: Yes (Other)
  Sender: FDA-Public Use
  Company Number: FR-PFIZER INC-2017039001

PATIENT
  Age: 96 Year
  Sex: Female

DRUGS (4)
  1. AMIODARONE HCL [Suspect]
     Active Substance: AMIODARONE HYDROCHLORIDE
     Dosage: UNK, DAILY
     Route: 065
  2. FUROSEMIDE. [Concomitant]
     Active Substance: FUROSEMIDE
     Dosage: UNK, DAILY
  3. MIANSERINE [Concomitant]
     Active Substance: MIANSERIN HYDROCHLORIDE
     Dosage: UNK, DAILY
  4. WARFARIN [Concomitant]
     Active Substance: WARFARIN
     Dosage: UNK, DAILY

REACTIONS (7)
  - Fall [Recovered/Resolved]
  - Muscle contractions involuntary [Recovered/Resolved]
  - Mobility decreased [Recovered/Resolved]
  - Dyskinesia [Recovered/Resolved]
  - Epilepsy [Recovered/Resolved]
  - Paraesthesia [Recovered/Resolved]
  - Pain in extremity [Recovered/Resolved]
